FAERS Safety Report 10062884 (Version 1)
Quarter: 2014Q2

REPORT INFORMATION
  Report Type: Spontaneous
  Country: US (occurrence: US)
  Receive Date: 20140407
  Receipt Date: 20140407
  Transmission Date: 20141212
  Serious: Yes (Death, Other)
  Sender: FDA-Public Use
  Company Number: PHHY2014US037883

PATIENT
  Age: 55 Year
  Sex: Female

DRUGS (2)
  1. PREDNISONE [Suspect]
     Indication: GRANULOMA
     Dosage: 10 MG, QOD
     Route: 048
  2. PREDNISONE [Suspect]
     Dosage: 80 MG, DAILY
     Route: 048

REACTIONS (5)
  - Chest pain [Fatal]
  - Granuloma [Unknown]
  - Vasogenic cerebral oedema [Unknown]
  - Disease recurrence [Unknown]
  - Drug effect incomplete [Unknown]
